FAERS Safety Report 6929324-0 (Version None)
Quarter: 2010Q3

REPORT INFORMATION
  Report Type: 
  Country: None (occurrence: None)
  Receive Date: 20100818
  Receipt Date: 20090113
  Transmission Date: 20110219
  Serious: Yes (Other)
  Sender: FDA-Public Use
  Company Number: CN-BAYER-201035670GPV

PATIENT
  Age: 44 Year
  Sex: Male

DRUGS (2)
  1. NEXAVAR [Suspect]
     Indication: BILE DUCT CANCER
     Dosage: UNIT DOSE: 400 MG
     Route: 048
     Dates: start: 20080901, end: 20080901
  2. NEXAVAR [Suspect]
     Dosage: UNIT DOSE: 400 MG
     Route: 048
     Dates: start: 20081201

REACTIONS (5)
  - BONE PAIN [None]
  - DECREASED APPETITE [None]
  - DIARRHOEA [None]
  - FATIGUE [None]
  - MOUTH ULCERATION [None]
